FAERS Safety Report 7533562-6 (Version None)
Quarter: 2011Q2

REPORT INFORMATION
  Report Type: 
  Country: None (occurrence: None)
  Receive Date: 20110608
  Receipt Date: 20060215
  Transmission Date: 20111010
  Serious: Yes (Hospitalization, Other)
  Sender: FDA-Public Use
  Company Number: PHFR2005GB04127

PATIENT
  Sex: Female

DRUGS (1)
  1. CLOZAPINE [Suspect]
     Indication: SCHIZOPHRENIA
     Dosage: UNK, UNK
     Route: 048
     Dates: start: 20051201

REACTIONS (6)
  - HAEMOGLOBIN DECREASED [None]
  - COLITIS ISCHAEMIC [None]
  - PLATELET COUNT DECREASED [None]
  - DIABETES MELLITUS [None]
  - MALAISE [None]
  - RECTAL HAEMORRHAGE [None]
